FAERS Safety Report 6144794-6 (Version None)
Quarter: 2009Q2

REPORT INFORMATION
  Report Type: 
  Country: None (occurrence: None)
  Receive Date: 20090402
  Receipt Date: 20090102
  Transmission Date: 20091009
  Serious: No
  Sender: FDA-Public Use
  Company Number: 1000004662

PATIENT
  Age: 50 Year
  Sex: Female

DRUGS (4)
  1. BYSTOLIC [Suspect]
     Indication: HYPERTENSION
     Dosage: 5 MG (5 MG, 1 IN 1 D), ORAL; 2.5 MG (2.5 MG, 1 IN 1 D), ORAL; 5 MG (5 MG, 1 IN 1 D), ORAL
     Route: 048
     Dates: start: 20081121, end: 20081101
  2. BYSTOLIC [Suspect]
     Indication: HYPERTENSION
     Dosage: 5 MG (5 MG, 1 IN 1 D), ORAL; 2.5 MG (2.5 MG, 1 IN 1 D), ORAL; 5 MG (5 MG, 1 IN 1 D), ORAL
     Route: 048
     Dates: start: 20081001, end: 20081120
  3. BYSTOLIC [Suspect]
     Indication: HYPERTENSION
     Dosage: 5 MG (5 MG, 1 IN 1 D), ORAL; 2.5 MG (2.5 MG, 1 IN 1 D), ORAL; 5 MG (5 MG, 1 IN 1 D), ORAL
     Route: 048
     Dates: start: 20081101
  4. ARMOUR THYROID (THYROID) (TABLET) [Suspect]
     Indication: HYPOTHYROIDISM
     Dosage: 30 MG (30 MG 1 IN 1 D), ORAL
     Route: 048
     Dates: start: 20081001

REACTIONS (9)
  - AGITATION [None]
  - CHEST DISCOMFORT [None]
  - CHEST PAIN [None]
  - COUGH [None]
  - DRUG INTERACTION [None]
  - DYSPNOEA [None]
  - HEADACHE [None]
  - INSOMNIA [None]
  - PAIN [None]
